FAERS Safety Report 15879899 (Version 1)
Quarter: 2019Q1

REPORT INFORMATION
  Report Type: Spontaneous
  Country: US (occurrence: US)
  Receive Date: 20190103
  Receipt Date: 20190103
  Transmission Date: 20190417
  Serious: No
  Sender: FDA-Public Use
  Company Number: None

PATIENT
  Age: 5 Year

DRUGS (4)
  1. CYTARABINE. [Suspect]
     Active Substance: CYTARABINE
  2. METHOTREXATE. [Concomitant]
     Active Substance: METHOTREXATE
  3. TABLOID [Suspect]
     Active Substance: THIOGUANINE
     Route: 048
     Dates: start: 20180117
  4. CYTOXAN [Concomitant]
     Active Substance: CYCLOPHOSPHAMIDE

REACTIONS (1)
  - Off label use [None]

NARRATIVE: CASE EVENT DATE: 20190103
